FAERS Safety Report 9969203 (Version 1)
Quarter: 2014Q1

REPORT INFORMATION
  Report Type: Report from Study
  Country: US (occurrence: US)
  Receive Date: 20140306
  Receipt Date: 20140306
  Transmission Date: 20141002
  Serious: No
  Sender: FDA-Public Use
  Company Number: US-ABBVIE-13P-163-1144162-00

PATIENT
  Age: 66 Year
  Sex: Female

DRUGS (17)
  1. HUMIRA [Suspect]
     Indication: CROHN^S DISEASE
     Dates: start: 201305
  2. TRAMADOL [Concomitant]
     Indication: PAIN
  3. ZYRTEC [Concomitant]
     Indication: SEASONAL ALLERGY
     Dosage: 10 MG EVERY DAY
  4. ZYRTEC [Concomitant]
     Indication: PROPHYLAXIS
  5. THYROXINE [Concomitant]
     Indication: THYROID DISORDER
     Dosage: 0.88 MG EVERY DAY
  6. CELEXA [Concomitant]
     Indication: MIGRAINE
     Dosage: 20 MG EVERY DAY
  7. CELEXA [Concomitant]
     Indication: ANTIDEPRESSANT THERAPY
  8. PANTOPRAZOLE [Concomitant]
     Indication: GASTROOESOPHAGEAL REFLUX DISEASE
     Dosage: 40 MG DAILY
  9. ROPINIROLE [Concomitant]
     Indication: RESTLESS LEGS SYNDROME
     Dosage: 1.5 PILLS A NIGHT
  10. ASPIRIN [Concomitant]
     Indication: CARDIOVASCULAR EVENT PROPHYLAXIS
     Dosage: 81 MG DAILY
  11. FOLIC ACID [Concomitant]
     Indication: PRODUCT USED FOR UNKNOWN INDICATION
     Dosage: 1 MG DAILY
  12. HYDROCHLOROTHIAZIDE [Concomitant]
     Indication: LOCAL SWELLING
     Dosage: 25 MG DAILY
  13. FLEXERIL [Concomitant]
     Indication: PRODUCT USED FOR UNKNOWN INDICATION
     Dosage: 10 MG DAILY
  14. TRAZODONE [Concomitant]
     Indication: PRODUCT USED FOR UNKNOWN INDICATION
     Dosage: AT BEDTIME
  15. VITAMIN D [Concomitant]
     Indication: PRODUCT USED FOR UNKNOWN INDICATION
  16. ALLOPURINOL [Concomitant]
     Indication: GOUT
     Dosage: 1/2 TABLET DAILY
  17. APRISO [Concomitant]
     Indication: CROHN^S DISEASE
     Dosage: 2 TABS PER DAY

REACTIONS (3)
  - Frequent bowel movements [Not Recovered/Not Resolved]
  - Crohn^s disease [Not Recovered/Not Resolved]
  - Nausea [Not Recovered/Not Resolved]
